FAERS Safety Report 9322629 (Version 1)
Quarter: 2013Q2

REPORT INFORMATION
  Report Type: Spontaneous
  Country: GB (occurrence: GB)
  Receive Date: 20130531
  Receipt Date: 20130531
  Transmission Date: 20140414
  Serious: Yes (Other)
  Sender: FDA-Public Use
  Company Number: GB-PW/030411/721

PATIENT
  Age: 29 Year
  Sex: Female

DRUGS (10)
  1. SUBUTEX [Suspect]
     Indication: DRUG DEPENDENCE
     Dosage: PATIENT WAS ON 8 MG DAILY INITIALLY
     Route: 060
     Dates: start: 20020228, end: 2002
  2. SUBUTEX [Suspect]
     Route: 060
     Dates: start: 2002, end: 2002
  3. SUBUTEX [Suspect]
     Route: 060
     Dates: start: 2002, end: 2002
  4. SUBUTEX [Suspect]
     Dosage: 800 UG
     Route: 060
     Dates: start: 2002, end: 2002
  5. SUBUTEX [Suspect]
     Dosage: WAS ON 1.2 MG WHEN THE BABY WAS BORN
     Route: 060
     Dates: start: 2002
  6. ZOPICLONE [Concomitant]
     Indication: INSOMNIA
     Dosage: 15MG QD
     Route: 065
  7. VALIUM [Concomitant]
     Indication: TREMOR
     Dosage: 5MG QD
     Route: 065
  8. SALBUTAMOL (ALBUTEROL) [Concomitant]
     Indication: ASTHMA
     Dosage: UNKNOWN DOSING DETAILS
     Route: 065
  9. BECOTIDE [Concomitant]
     Indication: PRODUCT USED FOR UNKNOWN INDICATION
     Dosage: UNKNOWN DOSING DETAILS
  10. NICOTINE [Concomitant]
     Indication: PRODUCT USED FOR UNKNOWN INDICATION
     Dosage: UNKNOWN DOSING DETAILS
     Route: 065

REACTIONS (2)
  - Exposure during pregnancy [Recovered/Resolved]
  - Gestational hypertension [Unknown]
